FAERS Safety Report 5514971-3 (Version None)
Quarter: 2007Q4

REPORT INFORMATION
  Report Type: 
  Country: None (occurrence: None)
  Receive Date: 20071113
  Receipt Date: 20061026
  Transmission Date: 20080405
  Serious: No
  Sender: FDA-Public Use
  Company Number: A0625059A

PATIENT
  Age: 90 Year
  Sex: Male

DRUGS (3)
  1. COREG [Suspect]
     Route: 048
     Dates: start: 20060701
  2. BENAZEPRIL HYDROCHLORIDE [Concomitant]
  3. COUMADIN [Concomitant]

REACTIONS (4)
  - ANXIETY [None]
  - ASTHENIA [None]
  - DEPRESSION [None]
  - DYSPNOEA [None]
